FAERS Safety Report 8187769-8 (Version None)
Quarter: 2012Q1

REPORT INFORMATION
  Report Type: 
  Country: None (occurrence: None)
  Receive Date: 20120306
  Receipt Date: 20120224
  Transmission Date: 20120608
  Serious: Yes (Hospitalization)
  Sender: FDA-Public Use
  Company Number: FR-MERCK-1202USA04169

PATIENT
  Age: 80 Year
  Sex: Male

DRUGS (6)
  1. IMOVANE [Suspect]
     Indication: INSOMNIA
     Route: 048
     Dates: start: 20110829
  2. EXELON [Concomitant]
     Route: 061
  3. ATHYMIL [Suspect]
     Indication: DEPRESSION
     Route: 065
     Dates: start: 20110829
  4. SINEMET [Suspect]
     Indication: PARKINSON'S DISEASE
     Route: 048
  5. LORAZEPAM [Suspect]
     Indication: ANXIETY
     Route: 048
  6. GUTRON [Concomitant]
     Route: 048

REACTIONS (1)
  - CONFUSIONAL STATE [None]
